FAERS Safety Report 16787829 (Version 3)
Quarter: 2020Q1

REPORT INFORMATION
  Report Type: Spontaneous
  Country: US (occurrence: US)
  Receive Date: 20190909
  Receipt Date: 20200124
  Transmission Date: 20200409
  Serious: No
  Sender: FDA-Public Use
  Company Number: US-ARRAY-2019-06260

PATIENT

DRUGS (2)
  1. BRAFTOVI [Suspect]
     Active Substance: ENCORAFENIB
     Indication: COLON CANCER
     Dosage: 450 MG, QD
     Route: 048
     Dates: start: 20190702, end: 20200109
  2. MEKTOVI [Suspect]
     Active Substance: BINIMETINIB
     Indication: COLON CANCER
     Dosage: 45 MG, BID
     Route: 048
     Dates: start: 20190702, end: 20200109

REACTIONS (6)
  - Product use in unapproved indication [Unknown]
  - Dry skin [Unknown]
  - Skin exfoliation [Unknown]
  - Diarrhoea [Unknown]
  - Hair growth abnormal [Unknown]
  - Acne [Unknown]

NARRATIVE: CASE EVENT DATE: 20190702
